FAERS Safety Report 21287191 (Version 1)
Quarter: 2022Q3

REPORT INFORMATION
  Report Type: Spontaneous
  Country: US (occurrence: US)
  Receive Date: 20220902
  Receipt Date: 20220902
  Transmission Date: 20221027
  Serious: No
  Sender: FDA-Public Use
  Company Number: US-PFIZER INC-202201110718

PATIENT
  Age: 24 Year

DRUGS (1)
  1. EFFEXOR XR [Suspect]
     Active Substance: VENLAFAXINE HYDROCHLORIDE
     Indication: Major depression
     Dosage: 75 MG
     Dates: start: 2022

REACTIONS (2)
  - Anxiety [Unknown]
  - Crying [Unknown]

NARRATIVE: CASE EVENT DATE: 20220101
